FAERS Safety Report 23538487 (Version 2)
Quarter: 2024Q1

REPORT INFORMATION
  Report Type: Spontaneous
  Country: US (occurrence: US)
  Receive Date: 20240219
  Receipt Date: 20240313
  Transmission Date: 20240410
  Serious: Yes (Other)
  Sender: FDA-Public Use
  Company Number: US-PFIZER INC-202400041661

PATIENT
  Sex: Male

DRUGS (2)
  1. INLYTA [Suspect]
     Active Substance: AXITINIB
     Dosage: 5 MG, 2X/DAY
  2. KEYTRUDA [Suspect]
     Active Substance: PEMBROLIZUMAB
     Dosage: UNK

REACTIONS (7)
  - Colitis [Recovered/Resolved]
  - Aphonia [Recovered/Resolved]
  - Diarrhoea [Recovered/Resolved]
  - Depression [Unknown]
  - Fatigue [Unknown]
  - Asthenia [Unknown]
  - Illness [Unknown]
